FAERS Safety Report 6489192-0 (Version None)
Quarter: 2009Q4

REPORT INFORMATION
  Report Type: 
  Country: None (occurrence: None)
  Receive Date: 20091210
  Receipt Date: 20090928
  Transmission Date: 20100525
  Serious: No
  Sender: FDA-Public Use
  Company Number: US-AMGEN-KDL366674

PATIENT
  Sex: Female

DRUGS (10)
  1. ENBREL [Suspect]
     Indication: RHEUMATOID ARTHRITIS
     Dates: start: 20090201
  2. PLAQUENIL [Concomitant]
  3. UNSPECIFIED THYROID MEDICATION [Concomitant]
  4. FOLIC ACID [Concomitant]
  5. MOBIC [Concomitant]
  6. OXYCONTIN [Concomitant]
  7. VITAMIN B-12 [Concomitant]
  8. VITAMIN B6 [Concomitant]
  9. ASCORBIC ACID [Concomitant]
  10. VITAMIN D [Concomitant]

REACTIONS (10)
  - ARTHRALGIA [None]
  - CRYING [None]
  - DRUG INEFFECTIVE [None]
  - ELBOW DEFORMITY [None]
  - FEELING ABNORMAL [None]
  - MALAISE [None]
  - MOBILITY DECREASED [None]
  - PAIN [None]
  - SLEEP DISORDER [None]
  - SLUGGISHNESS [None]
